FAERS Safety Report 18770990 (Version 1)
Quarter: 2021Q1

REPORT INFORMATION
  Report Type: Spontaneous
  Country: US (occurrence: US)
  Receive Date: 20210122
  Receipt Date: 20210122
  Transmission Date: 20210419
  Serious: Yes (Other)
  Sender: FDA-Public Use
  Company Number: US-PCCINC-2019-PEL-000461

PATIENT

DRUGS (6)
  1. GABLOFEN [Suspect]
     Active Substance: BACLOFEN
     Dosage: 15
     Route: 037
  2. GABLOFEN [Suspect]
     Active Substance: BACLOFEN
     Dosage: 200
     Route: 037
  3. GABLOFEN [Suspect]
     Active Substance: BACLOFEN
     Dosage: 500MCG AT 24MCG
     Route: 037
  4. GABLOFEN [Suspect]
     Active Substance: BACLOFEN
     Indication: MUSCLE SPASTICITY
     Dosage: UNK
     Route: 037
  5. GABLOFEN [Suspect]
     Active Substance: BACLOFEN
     Dosage: 70
     Route: 037
  6. GABLOFEN [Suspect]
     Active Substance: BACLOFEN
     Dosage: 140
     Route: 037

REACTIONS (7)
  - Hypokinesia [Recovered/Resolved]
  - Pain in extremity [Recovered/Resolved]
  - Device connection issue [Recovered/Resolved]
  - Muscle spasticity [Recovered/Resolved]
  - Device dislocation [Recovered/Resolved]
  - Drug ineffective [Recovered/Resolved]
  - Drug dose omission by device [Recovered/Resolved]
